FAERS Safety Report 8962623 (Version 1)
Quarter: 2012Q4

REPORT INFORMATION
  Report Type: 
  Country: IT (occurrence: IT)
  Receive Date: 20121214
  Receipt Date: 20121214
  Transmission Date: 20130627
  Serious: Yes (Hospitalization)
  Sender: FDA-Public Use
  Company Number: IT-SANOFI-AVENTIS-2012SA089660

PATIENT
  Age: 49 Year
  Sex: Male
  Weight: 88 kg

DRUGS (10)
  1. CLOPIDOGREL BISULFATE [Suspect]
     Indication: DRUG USE FOR UNKNOWN INDICATION
     Route: 065
     Dates: start: 20090112, end: 20090907
  2. ASPIRIN [Suspect]
     Indication: DRUG USE FOR UNKNOWN INDICATION
     Route: 065
     Dates: start: 20090109, end: 20090907
  3. METOPROLOL [Concomitant]
     Dates: start: 20090114, end: 20090907
  4. ATORVASTATIN [Concomitant]
     Dates: start: 20090109, end: 20090907
  5. OMEPRAZOLE [Concomitant]
     Dates: start: 20090109, end: 20090907
  6. GLYCERYL TRINITRATE [Concomitant]
     Dates: start: 20090113, end: 20090907
  7. RAMIPRIL [Concomitant]
     Dates: start: 20090113, end: 20090907
  8. DOCOSAHEXANOIC ACID/EICOSAPENTAENOIC ACID [Concomitant]
     Dates: start: 20090618, end: 20090907
  9. BLINDED THERAPY [Concomitant]
     Route: 048
     Dates: start: 20090312, end: 20090907
  10. BLINDED THERAPY [Concomitant]
     Route: 048
     Dates: start: 20090911

REACTIONS (1)
  - Helicobacter gastritis [Recovered/Resolved]
